FAERS Safety Report 17277756 (Version 2)
Quarter: 2020Q1

REPORT INFORMATION
  Report Type: Spontaneous
  Country: AU (occurrence: AU)
  Receive Date: 20200116
  Receipt Date: 20200117
  Transmission Date: 20200409
  Serious: Yes (Other)
  Sender: FDA-Public Use
  Company Number: AU-MYLANLABS-2020M1004271

PATIENT
  Sex: Male

DRUGS (1)
  1. PAXAM 0.5 [Suspect]
     Active Substance: CLONAZEPAM
     Indication: ANXIETY
     Dosage: 4 MILLIGRAM, QD

REACTIONS (2)
  - Off label use [Unknown]
  - Withdrawal syndrome [Unknown]
